FAERS Safety Report 6510827-8 (Version None)
Quarter: 2009Q4

REPORT INFORMATION
  Report Type: 
  Country: None (occurrence: None)
  Receive Date: 20091222
  Receipt Date: 20090114
  Transmission Date: 20100525
  Serious: No
  Sender: FDA-Public Use
  Company Number: US-ASTRAZENECA-2009UW01155

PATIENT
  Age: 62 Year
  Sex: Male

DRUGS (5)
  1. CRESTOR [Suspect]
     Indication: HYPERCHOLESTEROLAEMIA
     Dosage: 5 MG, EVERY OTHER DAY
     Route: 048
     Dates: start: 20090109
  2. PRILOSEC [Concomitant]
  3. LOTREL [Concomitant]
  4. CELEBREX [Concomitant]
  5. INCONTINENCE MEDICATION [Concomitant]

REACTIONS (3)
  - BACK PAIN [None]
  - CHEST DISCOMFORT [None]
  - FATIGUE [None]
